FAERS Safety Report 11256815 (Version 1)
Quarter: 2015Q3

REPORT INFORMATION
  Report Type: Spontaneous
  Country: US (occurrence: US)
  Receive Date: 20150709
  Receipt Date: 20150709
  Transmission Date: 20151125
  Serious: No
  Sender: FDA-Public Use
  Company Number: US-PURDUE-USA-2014-0115479

PATIENT
  Sex: Female

DRUGS (5)
  1. BUTRANS [Suspect]
     Active Substance: BUPRENORPHINE
     Indication: JOINT EFFUSION
  2. BUTRANS [Suspect]
     Active Substance: BUPRENORPHINE
     Indication: MENISCUS INJURY
  3. BUTRANS [Suspect]
     Active Substance: BUPRENORPHINE
     Indication: SPINAL OSTEOARTHRITIS
     Dosage: 15 MCG/HR, WEEKLY
     Route: 062
     Dates: start: 20140703
  4. BUTRANS [Suspect]
     Active Substance: BUPRENORPHINE
     Indication: ARTHROPATHY
     Dosage: 10 MCG/HR, WEEKLY
     Route: 062
     Dates: start: 2014
  5. BUTRANS [Suspect]
     Active Substance: BUPRENORPHINE
     Indication: SYNOVIAL CYST

REACTIONS (3)
  - Drug administered at inappropriate site [Unknown]
  - Drug ineffective [Unknown]
  - Product adhesion issue [Unknown]
